FAERS Safety Report 22958439 (Version 6)
Quarter: 2025Q4

REPORT INFORMATION
  Report Type: Report from Study
  Country: CN (occurrence: CN)
  Receive Date: 20230919
  Receipt Date: 20251126
  Transmission Date: 20260118
  Serious: Yes (Hospitalization, Other)
  Sender: ELI LILLY AND COMPANY
  Company Number: CN-ELI_LILLY_AND_COMPANY-CN202309005544

PATIENT
  Age: 27 Year
  Sex: Female

DRUGS (5)
  1. RETEVMO [Suspect]
     Active Substance: SELPERCATINIB
     Indication: Lung adenocarcinoma
     Dosage: 160 MG, BID
     Route: 048
     Dates: start: 202203
  2. RETEVMO [Suspect]
     Active Substance: SELPERCATINIB
     Indication: Lung neoplasm malignant
     Dosage: 160 MG, BID
     Route: 048
     Dates: start: 20230421
  3. RETEVMO [Suspect]
     Active Substance: SELPERCATINIB
     Dosage: 80 MG, BID
     Route: 048
     Dates: start: 20250708
  4. RETEVMO [Suspect]
     Active Substance: SELPERCATINIB
     Dosage: 160 MG, BID
     Route: 048
  5. RETEVMO [Suspect]
     Active Substance: SELPERCATINIB
     Dosage: 160 MG, BID
     Route: 048

REACTIONS (21)
  - Sinus bradycardia [Unknown]
  - Sinus arrhythmia [Unknown]
  - Renal cyst [Unknown]
  - Asthma [Unknown]
  - Leukopenia [Unknown]
  - Neutrophil percentage decreased [Unknown]
  - Cerebral ischaemia [Unknown]
  - Neutrophil count decreased [Unknown]
  - High density lipoprotein increased [Unknown]
  - Basophil percentage increased [Unknown]
  - Lymphocyte percentage increased [Unknown]
  - Mean platelet volume increased [Unknown]
  - Electrocardiogram T wave abnormal [Unknown]
  - Gamma-glutamyltransferase decreased [Unknown]
  - Blood alkaline phosphatase decreased [Unknown]
  - Prealbumin decreased [Unknown]
  - Cystatin C abnormal [Unknown]
  - Eosinophil count increased [Unknown]
  - Nasopharyngitis [Unknown]
  - Oropharyngeal discomfort [Unknown]
  - Anion gap decreased [Unknown]

NARRATIVE: CASE EVENT DATE: 20230525
